FAERS Safety Report 10774715 (Version 2)
Quarter: 2016Q2

REPORT INFORMATION
  Report Type: Report from Study
  Country: IN (occurrence: IN)
  Receive Date: 20150209
  Receipt Date: 20160602
  Transmission Date: 20160815
  Serious: Yes (Death, Hospitalization)
  Sender: FDA-Public Use
  Company Number: IN-ROCHE-1533553

PATIENT
  Age: 29 Year
  Sex: Male

DRUGS (2)
  1. EXXURA [Suspect]
     Active Substance: PEGINTERFERON ALFA-2A
     Indication: HEPATITIS C
     Route: 058
     Dates: start: 20141223, end: 20150113
  2. COPEGUS [Suspect]
     Active Substance: RIBAVIRIN
     Indication: HEPATITIS C
     Dosage: 4 TABLETS DAILY
     Route: 048
     Dates: start: 20141223, end: 20150113

REACTIONS (1)
  - Viral load increased [Fatal]
